FAERS Safety Report 5961569-9 (Version None)
Quarter: 2008Q4

REPORT INFORMATION
  Report Type: 
  Country: None (occurrence: None)
  Receive Date: 20081121
  Receipt Date: 20081118
  Transmission Date: 20090506
  Serious: Yes (Hospitalization)
  Sender: FDA-Public Use
  Company Number: B0546336A

PATIENT
  Age: 78 Year
  Sex: Female
  Weight: 45 kg

DRUGS (5)
  1. CEFUROXIME AXETIL [Suspect]
     Indication: PERIODONTITIS
     Route: 048
     Dates: start: 20081106, end: 20081101
  2. BLOPRESS [Concomitant]
     Dosage: 4MG PER DAY
     Route: 048
     Dates: start: 20040723
  3. UNKNOWN DRUG [Concomitant]
     Route: 048
  4. LIPITOR [Concomitant]
     Dosage: 5MG PER DAY
     Route: 048
     Dates: start: 20040723
  5. MAGLAX [Concomitant]
     Dosage: 2970MG PER DAY
     Route: 048

REACTIONS (8)
  - BLOOD PRESSURE DECREASED [None]
  - DYSPNOEA [None]
  - ERYTHEMA [None]
  - GENERALISED OEDEMA [None]
  - HYPERSENSITIVITY [None]
  - PRURITUS [None]
  - TACHYCARDIA [None]
  - VOMITING [None]
